FAERS Safety Report 4492648-3 (Version None)
Quarter: 2004Q4

REPORT INFORMATION
  Report Type: 
  Country: None (occurrence: None)
  Receive Date: 20041103
  Receipt Date: 20041020
  Transmission Date: 20050328
  Serious: Yes (Disabling, Other)
  Sender: FDA-Public Use
  Company Number: 2004S1003159

PATIENT
  Age: 37 Year
  Sex: Female

DRUGS (1)
  1. AMITRIPTYLINE HCL [Suspect]
     Indication: DEPRESSION
     Dosage: 75MG QD, ORAL
     Route: 048
     Dates: start: 19920101, end: 19950101

REACTIONS (6)
  - ACTIVITIES OF DAILY LIVING IMPAIRED [None]
  - BLADDER DISORDER [None]
  - DERMATITIS [None]
  - PAIN [None]
  - PHOTOSENSITIVITY REACTION [None]
  - POLLAKIURIA [None]
